FAERS Safety Report 15739604 (Version 1)
Quarter: 2018Q4

REPORT INFORMATION
  Report Type: Report from Study
  Country: GB (occurrence: GB)
  Receive Date: 20181219
  Receipt Date: 20181219
  Transmission Date: 20190205
  Serious: Yes (Hospitalization)
  Sender: FDA-Public Use
  Company Number: GB-PFIZER INC-2018510841

PATIENT
  Sex: Male
  Weight: 16.1 kg

DRUGS (7)
  1. ONDANSETRON [Concomitant]
     Active Substance: ONDANSETRON
     Indication: NAUSEA
     Dosage: 4.0 MG, 3X/DAY
     Dates: start: 20180723
  2. CYCLIZINE [Concomitant]
     Active Substance: CYCLIZINE
     Indication: NAUSEA
     Dosage: 12.5 MG, 3X/DAY
     Dates: start: 20180723
  3. METRONIDAZOLE. [Concomitant]
     Active Substance: METRONIDAZOLE
     Indication: CLOSTRIDIUM DIFFICILE COLITIS
     Dosage: 125.0 MG, 3X/DAY
     Dates: start: 20180723
  4. GEMTUZUMAB OZOGAMICIN [Suspect]
     Active Substance: GEMTUZUMAB OZOGAMICIN
     Indication: ACUTE MYELOID LEUKAEMIA
     Dosage: 2.1 MG, UNK (OTHER)
     Route: 042
     Dates: start: 20180605, end: 20180611
  5. AMILORIDE [Concomitant]
     Active Substance: AMILORIDE
     Indication: BLOOD POTASSIUM
     Dosage: 1.5 MG, 2X/DAY
     Dates: start: 20180723
  6. MITOXANTRONE HCL [Suspect]
     Active Substance: MITOXANTRONE HYDROCHLORIDE
     Indication: ACUTE MYELOID LEUKAEMIA
     Dosage: 8.2 MG/M2, 1X/DAY
     Route: 042
     Dates: start: 20180602, end: 20180720
  7. ITRACONAZOLE. [Concomitant]
     Active Substance: ITRACONAZOLE
     Indication: ANTIFUNGAL PROPHYLAXIS
     Dosage: 45 MG, 2X/DAY
     Dates: start: 20180723

REACTIONS (2)
  - Febrile neutropenia [Recovered/Resolved]
  - Febrile neutropenia [Recovered/Resolved]

NARRATIVE: CASE EVENT DATE: 20180801
